FAERS Safety Report 4979159-3 (Version None)
Quarter: 2006Q2

REPORT INFORMATION
  Report Type: 
  Country: None (occurrence: None)
  Receive Date: 20060418
  Receipt Date: 20060405
  Transmission Date: 20061013
  Serious: Yes (Death, Life-Threatening)
  Sender: FDA-Public Use
  Company Number: 219378

PATIENT

DRUGS (6)
  1. RITUXAN [Suspect]
     Indication: B-CELL LYMPHOMA
     Dosage: SEE IMAGE, INTRAVENOUS
     Route: 042
     Dates: start: 20051012, end: 20051013
  2. PREDNISOLONE SODIUM PHOSPHATE [Concomitant]
  3. SOLU-MEDROL [Concomitant]
  4. MAXIPIME [Concomitant]
  5. POLARAMINE [Concomitant]
  6. SAXIZON (HYDROCORTISONE SODIUM SUCCINATE) [Concomitant]

REACTIONS (8)
  - CONDITION AGGRAVATED [None]
  - ENCEPHALITIS [None]
  - ENCEPHALOPATHY [None]
  - HAEMOGLOBIN DECREASED [None]
  - LARGE INTESTINAL HAEMORRHAGE [None]
  - NUCLEAR MAGNETIC RESONANCE IMAGING BRAIN ABNORMAL [None]
  - PNEUMONIA [None]
  - VIRAL INFECTION [None]
